FAERS Safety Report 6111968-X (Version None)
Quarter: 2009Q1

REPORT INFORMATION
  Report Type: 
  Country: None (occurrence: None)
  Receive Date: 20090311
  Receipt Date: 20090224
  Transmission Date: 20090719
  Serious: Yes (Other)
  Sender: FDA-Public Use
  Company Number: AU-GENENTECH-278615

PATIENT
  Sex: Male

DRUGS (1)
  1. LUCENTIS [Suspect]
     Indication: MACULAR DEGENERATION
     Dosage: 0.05 ML, Q3W
     Route: 031
     Dates: start: 20080301

REACTIONS (3)
  - CARDIAC DISORDER [None]
  - LOWER RESPIRATORY TRACT INFECTION [None]
  - VISUAL ACUITY REDUCED [None]
